FAERS Safety Report 7271649-6 (Version None)
Quarter: 2011Q1

REPORT INFORMATION
  Report Type: 
  Country: None (occurrence: None)
  Receive Date: 20110203
  Receipt Date: 20110127
  Transmission Date: 20110831
  Serious: No
  Sender: FDA-Public Use
  Company Number: JP-JNJFOC-20110107624

PATIENT
  Sex: Female

DRUGS (1)
  1. DUROTEP MT [Suspect]
     Indication: BACK PAIN
     Route: 062

REACTIONS (5)
  - WITHDRAWAL SYNDROME [None]
  - PRURITUS [None]
  - AVERSION [None]
  - NAUSEA [None]
  - WRONG TECHNIQUE IN DRUG USAGE PROCESS [None]
